FAERS Safety Report 21963287 (Version 2)
Quarter: 2023Q1

REPORT INFORMATION
  Report Type: Spontaneous
  Country: US (occurrence: US)
  Receive Date: 20230207
  Receipt Date: 20230317
  Transmission Date: 20230418
  Serious: Yes (Other)
  Sender: FDA-Public Use
  Company Number: US-PFIZER INC-202300051778

PATIENT
  Age: 43 Year
  Sex: Female
  Weight: 79.38 kg

DRUGS (2)
  1. PAXLOVID [Suspect]
     Active Substance: NIRMATRELVIR\RITONAVIR
     Indication: COVID-19 treatment
     Dosage: UNK (5 BLISTER CARDS, 300MG WITH 100MG DOSE PACK)
     Dates: start: 20230131, end: 20230131
  2. AZITHROMYCIN [Concomitant]
     Active Substance: AZITHROMYCIN
     Dosage: UNK
     Dates: start: 20230131

REACTIONS (9)
  - Near death experience [Recovered/Resolved]
  - Diarrhoea [Recovered/Resolved]
  - Vomiting [Recovered/Resolved]
  - Chest pain [Recovered/Resolved]
  - Neck pain [Recovered/Resolved]
  - Abdominal discomfort [Recovered/Resolved]
  - Dysgeusia [Recovered/Resolved]
  - Dyspepsia [Recovered/Resolved]
  - Choking sensation [Recovered/Resolved]

NARRATIVE: CASE EVENT DATE: 20230131
